FAERS Safety Report 4706411-9 (Version None)
Quarter: 2005Q2

REPORT INFORMATION
  Report Type: 
  Country: None (occurrence: None)
  Receive Date: 20050629
  Receipt Date: 20050407
  Transmission Date: 20051028
  Serious: No
  Sender: FDA-Public Use
  Company Number: 05P-163-0296874-00

PATIENT
  Age: 61 Year
  Sex: Female
  Weight: 84.8226 kg

DRUGS (8)
  1. HUMIRA [Suspect]
     Indication: RHEUMATOID ARTHRITIS
     Dosage: 40 MG, 1 IN 2 WK, SUBCUTANEOUS
     Route: 058
     Dates: start: 20030501
  2. METHOTREXATE [Concomitant]
  3. PREDNISONE TAB [Concomitant]
  4. FOLIC ACID [Concomitant]
  5. PILOCARPINE HYDROCHLORIDE [Concomitant]
  6. FENOFIBRATE [Concomitant]
  7. ALPRAZOLAM [Concomitant]
  8. VICODIN [Concomitant]

REACTIONS (1)
  - URINARY TRACT INFECTION [None]
